FAERS Safety Report 21683443 (Version 2)
Quarter: 2023Q1

REPORT INFORMATION
  Report Type: Spontaneous
  Country: JP (occurrence: JP)
  Receive Date: 20221205
  Receipt Date: 20230103
  Transmission Date: 20230418
  Serious: No
  Sender: FDA-Public Use
  Company Number: JP-JNJFOC-20221153434

PATIENT
  Age: 9 Decade
  Sex: Female

DRUGS (1)
  1. SIMPONI [Suspect]
     Active Substance: GOLIMUMAB
     Indication: Rheumatoid arthritis
     Dosage: STRENGTH: 50.00 MG / 0.50 ML
     Route: 058
     Dates: start: 20220819

REACTIONS (3)
  - Device deployment issue [Recovering/Resolving]
  - Injury associated with device [Recovering/Resolving]
  - Needle issue [Recovering/Resolving]

NARRATIVE: CASE EVENT DATE: 20221118
